FAERS Safety Report 14567264 (Version 5)
Quarter: 2018Q2

REPORT INFORMATION
  Report Type: Spontaneous
  Country: FR (occurrence: FR)
  Receive Date: 20180223
  Receipt Date: 20180619
  Transmission Date: 20180711
  Serious: Yes (Hospitalization, Other)
  Sender: FDA-Public Use
  Company Number: FR-PFIZER INC-2018075955

PATIENT
  Age: 79 Year
  Sex: Female
  Weight: 50 kg

DRUGS (3)
  1. XALATAN [Suspect]
     Active Substance: LATANOPROST
     Indication: GLAUCOMA
     Dosage: 2 DROPS IN THE EVENING
     Dates: start: 20080606, end: 20180313
  2. LEXOMIL [Concomitant]
     Active Substance: BROMAZEPAM
     Indication: ANXIETY
     Dosage: 0.25 DF, 1X/DAY
     Route: 048
     Dates: start: 2000
  3. AZOPT [Suspect]
     Active Substance: BRINZOLAMIDE
     Indication: GLAUCOMA
     Dosage: 1 GTT, 2X/DAY IN THE MORNING AND EVENING
     Dates: start: 20080606, end: 20180313

REACTIONS (9)
  - Cough [Recovered/Resolved]
  - Dyspnoea [Recovered/Resolved]
  - Respiratory disorder [Not Recovered/Not Resolved]
  - Increased bronchial secretion [Unknown]
  - Obstructive airways disorder [Unknown]
  - Bronchospasm [Recovering/Resolving]
  - Pharyngitis [Not Recovered/Not Resolved]
  - Asthma [Recovering/Resolving]
  - Asphyxia [Not Recovered/Not Resolved]

NARRATIVE: CASE EVENT DATE: 201712
